FAERS Safety Report 4688176-2 (Version None)
Quarter: 2005Q2

REPORT INFORMATION
  Report Type: 
  Country: None (occurrence: None)
  Receive Date: 20050609
  Receipt Date: 20050527
  Transmission Date: 20051028
  Serious: Yes (Hospitalization, Other)
  Sender: FDA-Public Use
  Company Number: USA-2005-0018948

PATIENT
  Sex: Male

DRUGS (14)
  1. MORPHINE SULFATE [Suspect]
     Dosage: 90 MG, TID, ORAL
     Route: 048
  2. OXYCONTIN [Concomitant]
  3. MORPHINE SULFATE [Concomitant]
  4. XANAFALEX [Concomitant]
  5. FLEXERIL [Concomitant]
  6. PRILOSEC [Concomitant]
  7. TRAZODONE (TRAZODONE) [Concomitant]
  8. ZOLOFT [Concomitant]
  9. AMOXIL [Concomitant]
  10. FLOVENT [Concomitant]
  11. ALBUTEROL [Concomitant]
  12. KEFLEX [Concomitant]
  13. PROMETHAZINE [Concomitant]
  14. CIPRO [Concomitant]

REACTIONS (43)
  - ABDOMINAL PAIN [None]
  - ANGINA PECTORIS [None]
  - ANXIETY [None]
  - ARTHRALGIA [None]
  - ASTHENIA [None]
  - BALANCE DISORDER [None]
  - BURNING SENSATION [None]
  - CHEST PAIN [None]
  - CHILLS [None]
  - COLITIS [None]
  - CONSTIPATION [None]
  - DEPRESSION [None]
  - DERMATITIS EXFOLIATIVE [None]
  - DIARRHOEA [None]
  - DYSPNOEA [None]
  - FAECES DISCOLOURED [None]
  - FALL [None]
  - FATIGUE [None]
  - HYPERHIDROSIS [None]
  - HYPOAESTHESIA [None]
  - JOINT SPRAIN [None]
  - JOINT SWELLING [None]
  - LIMB INJURY [None]
  - LOSS OF CONSCIOUSNESS [None]
  - MUSCULOSKELETAL STIFFNESS [None]
  - MYALGIA [None]
  - NAUSEA [None]
  - NECK PAIN [None]
  - OEDEMA PERIPHERAL [None]
  - ONYCHOMYCOSIS [None]
  - PAIN [None]
  - PAIN IN EXTREMITY [None]
  - PARAESTHESIA [None]
  - PERICARDITIS [None]
  - PLEURISY [None]
  - PNEUMONIA [None]
  - PRODUCTIVE COUGH [None]
  - PYREXIA [None]
  - SHOULDER PAIN [None]
  - TENDERNESS [None]
  - THERAPEUTIC RESPONSE DECREASED [None]
  - TINEA PEDIS [None]
  - WEIGHT DECREASED [None]
